FAERS Safety Report 5130661-3 (Version None)
Quarter: 2006Q4

REPORT INFORMATION
  Report Type: 
  Country: None (occurrence: None)
  Receive Date: 20061018
  Receipt Date: 20061018
  Transmission Date: 20070319
  Serious: No
  Sender: FDA-Public Use
  Company Number: None

PATIENT
  Sex: Male
  Weight: 64.8644 kg

DRUGS (2)
  1. DOCETAXEL [Suspect]
     Indication: NEOPLASM MALIGNANT
     Dosage: 100 MG EVERY 3 WKS IV
     Route: 042
     Dates: start: 20060829
  2. CISPLATIN [Suspect]
     Dosage: 101 MG EVERY 3 WEEKS IV
     Route: 042
     Dates: start: 20060829

REACTIONS (2)
  - DIARRHOEA [None]
  - MYALGIA [None]
